FAERS Safety Report 20347816 (Version 1)
Quarter: 2022Q1

REPORT INFORMATION
  Report Type: Spontaneous
  Country: BR (occurrence: BR)
  Receive Date: 20220118
  Receipt Date: 20220118
  Transmission Date: 20220423
  Serious: Yes (Other)
  Sender: FDA-Public Use
  Company Number: BR-SCALL-2022-BR-000007

PATIENT
  Age: 80 Year
  Sex: Male

DRUGS (1)
  1. DUTASTERIDE\TAMSULOSIN HYDROCHLORIDE [Suspect]
     Active Substance: DUTASTERIDE\TAMSULOSIN HYDROCHLORIDE
     Indication: Urinary tract infection
     Route: 065

REACTIONS (6)
  - Nephrolithiasis [Unknown]
  - Prostatic disorder [Unknown]
  - Visual impairment [Unknown]
  - Hypoacusis [Unknown]
  - Product prescribing issue [Unknown]
  - Off label use [Unknown]
